FAERS Safety Report 9470721 (Version 1)
Quarter: 2013Q3

REPORT INFORMATION
  Report Type: Spontaneous
  Country: HR (occurrence: HR)
  Receive Date: 20130822
  Receipt Date: 20130822
  Transmission Date: 20140515
  Serious: Yes (Hospitalization, Other)
  Sender: FDA-Public Use
  Company Number: HR-PFIZER INC-2013243365

PATIENT
  Sex: Male
  Weight: 60 kg

DRUGS (3)
  1. ZOLOFT [Suspect]
     Dosage: 25 MG; 1X1
     Route: 048
  2. DEPAKINE CHRONO [Suspect]
     Indication: BIPOLAR DISORDER
     Dosage: 300 MG; 1X1
     Route: 048
  3. CERSON (NITRAZEPAM) [Suspect]
     Dosage: 5 MG; PO POTREBI
     Route: 048

REACTIONS (4)
  - Overdose [Recovered/Resolved]
  - Nerve injury [Not Recovered/Not Resolved]
  - Poisoning [Recovered/Resolved]
  - Monoparesis [Not Recovered/Not Resolved]
